FAERS Safety Report 18447017 (Version 1)
Quarter: 2020Q4

REPORT INFORMATION
  Report Type: Spontaneous
  Country: US (occurrence: US)
  Receive Date: 20201030
  Receipt Date: 20201030
  Transmission Date: 20210114
  Serious: Yes (Other)
  Sender: FDA-Public Use
  Company Number: None

PATIENT
  Age: 69 Year
  Sex: Male
  Weight: 31.89 kg

DRUGS (11)
  1. CLARITIN [Suspect]
     Active Substance: LORATADINE
     Indication: HYPERSENSITIVITY
     Dosage: ?          QUANTITY:1 PILL;?
     Route: 048
     Dates: start: 201601, end: 20170219
  2. METAFORMIN [Concomitant]
  3. GLIMEPIRIDE. [Concomitant]
     Active Substance: GLIMEPIRIDE
  4. WALMRT MULTI-VITAMIN [Concomitant]
  5. LISINOPRIL. [Concomitant]
     Active Substance: LISINOPRIL
  6. CLARITIN [Suspect]
     Active Substance: LORATADINE
     Indication: UPPER-AIRWAY COUGH SYNDROME
     Dosage: ?          QUANTITY:1 PILL;?
     Route: 048
     Dates: start: 201601, end: 20170219
  7. ROVASTATIN [Concomitant]
     Active Substance: ROSUVASTATIN
  8. CALCIUM [Concomitant]
     Active Substance: CALCIUM
  9. NASACORT [Suspect]
     Active Substance: TRIAMCINOLONE ACETONIDE
  10. TAMSULOSIN [Concomitant]
     Active Substance: TAMSULOSIN
  11. VITAMIN D3 [Concomitant]
     Active Substance: CHOLECALCIFEROL

REACTIONS (3)
  - Pain [None]
  - Urinary retention [None]
  - Product label issue [None]
